FAERS Safety Report 21806833 (Version 1)
Quarter: 2023Q1

REPORT INFORMATION
  Report Type: Report from Study
  Country: US (occurrence: US)
  Receive Date: 20230102
  Receipt Date: 20230102
  Transmission Date: 20230417
  Serious: Yes (Death, Hospitalization, Other)
  Sender: FDA-Public Use
  Company Number: US-TAKEDA-2022TUS067340

PATIENT
  Age: 7 Year
  Sex: Male

DRUGS (12)
  1. TEDUGLUTIDE [Suspect]
     Active Substance: TEDUGLUTIDE
     Indication: Short-bowel syndrome
     Dosage: 1.135 MILLIGRAM, QD
     Route: 058
     Dates: start: 20220714
  2. TEDUGLUTIDE [Suspect]
     Active Substance: TEDUGLUTIDE
     Indication: Short-bowel syndrome
     Dosage: 1.135 MILLIGRAM, QD
     Route: 058
     Dates: start: 20220714
  3. TEDUGLUTIDE [Suspect]
     Active Substance: TEDUGLUTIDE
     Indication: Short-bowel syndrome
     Dosage: 1.135 MILLIGRAM, QD
     Route: 058
     Dates: start: 20220714
  4. TEDUGLUTIDE [Suspect]
     Active Substance: TEDUGLUTIDE
     Indication: Short-bowel syndrome
     Dosage: 1.135 MILLIGRAM, QD
     Route: 058
     Dates: start: 20220714
  5. TEDUGLUTIDE [Suspect]
     Active Substance: TEDUGLUTIDE
     Dosage: 1.135 MILLIGRAM, QD
     Route: 058
     Dates: start: 20220715
  6. TEDUGLUTIDE [Suspect]
     Active Substance: TEDUGLUTIDE
     Dosage: 1.135 MILLIGRAM, QD
     Route: 058
     Dates: start: 20220715
  7. TEDUGLUTIDE [Suspect]
     Active Substance: TEDUGLUTIDE
     Dosage: 1.135 MILLIGRAM, QD
     Route: 058
     Dates: start: 20220715
  8. TEDUGLUTIDE [Suspect]
     Active Substance: TEDUGLUTIDE
     Dosage: 1.135 MILLIGRAM, QD
     Route: 058
     Dates: start: 20220715
  9. TEDUGLUTIDE [Suspect]
     Active Substance: TEDUGLUTIDE
     Dosage: 5 MILLIGRAM, QD
     Route: 058
     Dates: start: 202207
  10. TEDUGLUTIDE [Suspect]
     Active Substance: TEDUGLUTIDE
     Dosage: 5 MILLIGRAM, QD
     Route: 058
     Dates: start: 202207
  11. TEDUGLUTIDE [Suspect]
     Active Substance: TEDUGLUTIDE
     Dosage: 5 MILLIGRAM, QD
     Route: 058
     Dates: start: 202207
  12. TEDUGLUTIDE [Suspect]
     Active Substance: TEDUGLUTIDE
     Dosage: 5 MILLIGRAM, QD
     Route: 058
     Dates: start: 202207

REACTIONS (6)
  - Death [Fatal]
  - Septic shock [Unknown]
  - Respiratory distress [None]
  - Acute hepatic failure [None]
  - Hyperbilirubinaemia [None]
  - Product dose omission issue [Unknown]

NARRATIVE: CASE EVENT DATE: 20220913
